FAERS Safety Report 7134196-8 (Version None)
Quarter: 2010Q4

REPORT INFORMATION
  Report Type: 
  Country: None (occurrence: None)
  Receive Date: 20101203
  Receipt Date: 20101124
  Transmission Date: 20110411
  Serious: Yes (Hospitalization)
  Sender: FDA-Public Use
  Company Number: US-ASTRAZENECA-2010SE56395

PATIENT
  Age: 16 Year
  Sex: Male
  Weight: 158.8 kg

DRUGS (4)
  1. SEROQUEL XR [Suspect]
     Indication: BIPOLAR DISORDER
     Route: 048
     Dates: start: 20101122
  2. ATIVAN [Concomitant]
     Indication: ASPERGER'S DISORDER
     Route: 048
     Dates: start: 20100101
  3. IBUPROFEN [Concomitant]
     Indication: PAIN
     Route: 048
     Dates: start: 20100101
  4. SYBTHROID [Concomitant]
     Indication: HYPOTHYROIDISM
     Route: 048
     Dates: start: 20100101

REACTIONS (2)
  - LIVER FUNCTION TEST ABNORMAL [None]
  - MYOGLOBINURIA [None]
